FAERS Safety Report 6642983-5 (Version None)
Quarter: 2010Q1

REPORT INFORMATION
  Report Type: 
  Country: None (occurrence: None)
  Receive Date: 20100319
  Receipt Date: 20100317
  Transmission Date: 20100710
  Serious: Yes (Other)
  Sender: FDA-Public Use
  Company Number: A0847919A

PATIENT
  Sex: Female

DRUGS (5)
  1. TYKERB [Suspect]
     Dosage: 1250MG PER DAY
     Route: 048
     Dates: start: 20091221
  2. XELODA [Suspect]
     Dosage: 1500MG TWICE PER DAY
     Route: 048
     Dates: start: 20091221
  3. TYLENOL W/ CODEINE NO. 3 [Concomitant]
     Indication: PAIN
     Route: 065
  4. COLACE [Concomitant]
     Route: 065
  5. SENOKOT [Concomitant]
     Route: 065

REACTIONS (4)
  - ERYTHEMA [None]
  - PALMAR-PLANTAR ERYTHRODYSAESTHESIA SYNDROME [None]
  - SKIN EXFOLIATION [None]
  - STOMATITIS [None]
